FAERS Safety Report 7426348-4 (Version None)
Quarter: 2011Q2

REPORT INFORMATION
  Report Type: 
  Country: None (occurrence: None)
  Receive Date: 20110420
  Receipt Date: 20110413
  Transmission Date: 20111010
  Serious: Yes (Other)
  Sender: FDA-Public Use
  Company Number: B0714271A

PATIENT
  Sex: Female
  Weight: 83 kg

DRUGS (1)
  1. TYKERB [Suspect]
     Indication: BREAST CANCER
     Dosage: 12.5MG PER DAY
     Route: 065
     Dates: start: 20110324, end: 20110331

REACTIONS (5)
  - DYSPNOEA [None]
  - ABASIA [None]
  - MUSCULAR WEAKNESS [None]
  - PALPITATIONS [None]
  - ASTHENIA [None]
